FAERS Safety Report 14879016 (Version 1)
Quarter: 2018Q2

REPORT INFORMATION
  Report Type: Spontaneous
  Country: US (occurrence: US)
  Receive Date: 20180511
  Receipt Date: 20180511
  Transmission Date: 20180711
  Serious: No
  Sender: FDA-Public Use
  Company Number: US-BAYER-2018-084298

PATIENT
  Sex: Female

DRUGS (3)
  1. FINACEA [Suspect]
     Active Substance: AZELAIC ACID
     Indication: ERYTHEMA
  2. FINACEA [Suspect]
     Active Substance: AZELAIC ACID
     Indication: SWELLING
  3. FINACEA [Suspect]
     Active Substance: AZELAIC ACID
     Indication: PARAESTHESIA

REACTIONS (4)
  - Product odour abnormal [None]
  - Drug ineffective [None]
  - Poor quality drug administered [None]
  - Product quality issue [None]
